FAERS Safety Report 5421993-X (Version None)
Quarter: 2007Q3

REPORT INFORMATION
  Report Type: 
  Country: None (occurrence: None)
  Receive Date: 20070822
  Receipt Date: 20070815
  Transmission Date: 20080115
  Serious: Yes (Hospitalization)
  Sender: FDA-Public Use
  Company Number: PHBS2007DK13741

PATIENT
  Age: 38 Year
  Sex: Female

DRUGS (1)
  1. DIOVAN COMP [Suspect]
     Indication: HYPERTENSION
     Route: 048
     Dates: start: 20070723

REACTIONS (4)
  - DIZZINESS [None]
  - MALAISE [None]
  - PALPITATIONS [None]
  - VISION BLURRED [None]
